FAERS Safety Report 4817508-7 (Version None)
Quarter: 2005Q4

REPORT INFORMATION
  Report Type: 
  Country: None (occurrence: None)
  Receive Date: 20051031
  Receipt Date: 20051020
  Transmission Date: 20060501
  Serious: Yes (Hospitalization)
  Sender: FDA-Public Use
  Company Number: 2005145384

PATIENT
  Age: 23 Year
  Sex: Female

DRUGS (1)
  1. ATARAX [Suspect]
     Indication: URTICARIA CHOLINERGIC
     Dosage: 25 MG (UNKNOWN), ORAL
     Route: 048
     Dates: start: 20051011

REACTIONS (3)
  - DYSPNOEA [None]
  - SHOCK [None]
  - URTICARIA [None]
